FAERS Safety Report 5762656-0 (Version None)
Quarter: 2008Q2

REPORT INFORMATION
  Report Type: 
  Country: None (occurrence: None)
  Receive Date: 20080609
  Receipt Date: 20080604
  Transmission Date: 20081010
  Serious: Yes (Death, Hospitalization)
  Sender: FDA-Public Use
  Company Number: JP-AVENTIS-200712636JP

PATIENT
  Age: 68 Year
  Sex: Female

DRUGS (16)
  1. ARAVA [Suspect]
     Indication: RHEUMATOID ARTHRITIS
     Route: 048
     Dates: start: 20070531, end: 20070909
  2. METHOTREXATE [Concomitant]
     Indication: RHEUMATOID ARTHRITIS
     Dosage: DOSE: 4 MG/WEEK
     Route: 048
     Dates: start: 20050105, end: 20050301
  3. METHOTREXATE [Concomitant]
     Dosage: DOSE: 6 MG/WEEK
     Route: 048
     Dates: start: 20050302, end: 20070531
  4. FAMOTIDINE [Concomitant]
     Indication: GASTRITIS
     Route: 048
     Dates: end: 20070704
  5. FAMOTIDINE [Concomitant]
     Indication: ABDOMINAL PAIN UPPER
     Route: 048
     Dates: end: 20070704
  6. OSTELUC [Concomitant]
     Indication: MUSCULOSKELETAL PAIN
     Route: 048
  7. FOLIAMIN [Concomitant]
     Indication: MUSCULOSKELETAL PAIN
     Route: 048
     Dates: end: 20070531
  8. AZULFIDINE EN-TABS [Concomitant]
     Indication: MUSCULOSKELETAL PAIN
     Route: 048
     Dates: end: 20070531
  9. OSPAIN [Concomitant]
     Indication: RHEUMATOID ARTHRITIS
     Route: 048
     Dates: end: 20070708
  10. ULGUT [Concomitant]
     Route: 048
     Dates: start: 20070705, end: 20071108
  11. BISOLVON                           /00004702/ [Concomitant]
     Indication: BRONCHITIS
     Route: 048
  12. ERYTHROMYCIN [Concomitant]
     Indication: BRONCHITIS
     Route: 048
  13. DASEN [Concomitant]
     Indication: BRONCHITIS
     Route: 048
  14. THEOLONG [Concomitant]
     Indication: BRONCHITIS
     Route: 048
  15. CLEANAL [Concomitant]
     Indication: BRONCHITIS
     Route: 048
  16. MARZULENE S [Concomitant]
     Indication: BRONCHITIS
     Route: 048

REACTIONS (4)
  - INTERSTITIAL LUNG DISEASE [None]
  - PYREXIA [None]
  - RESPIRATORY FAILURE [None]
  - RHEUMATOID LUNG [None]
